FAERS Safety Report 21792974 (Version 1)
Quarter: 2022Q4

REPORT INFORMATION
  Report Type: Spontaneous
  Country: ES (occurrence: ES)
  Receive Date: 20221229
  Receipt Date: 20221229
  Transmission Date: 20230113
  Serious: No
  Sender: FDA-Public Use
  Company Number: ES-ALKEM LABORATORIES LIMITED-ES-ALKEM-2022-11720

PATIENT
  Age: 8 Year
  Sex: Male

DRUGS (3)
  1. SIROLIMUS [Suspect]
     Active Substance: SIROLIMUS
     Indication: Lymphatic disorder
     Dosage: 0.8 MILLIGRAM/SQ. METER, (EVERY 12 HOURS)
     Route: 048
     Dates: start: 201902
  2. SULFAMETHOXAZOLE\TRIMETHOPRIM [Concomitant]
     Active Substance: SULFAMETHOXAZOLE\TRIMETHOPRIM
     Indication: Antifungal prophylaxis
     Dosage: UNK
     Route: 065
  3. RAPAMYCIN [Concomitant]
     Active Substance: SIROLIMUS
     Indication: Lymphatic disorder
     Dosage: UNK
     Route: 065

REACTIONS (1)
  - Enanthema [Unknown]
